FAERS Safety Report 5467198-8 (Version None)
Quarter: 2007Q3

REPORT INFORMATION
  Report Type: 
  Country: None (occurrence: None)
  Receive Date: 20070925
  Receipt Date: 20070920
  Transmission Date: 20080115
  Serious: Yes (Death, Hospitalization)
  Sender: FDA-Public Use
  Company Number: US-ASTRAZENECA-2006UW22624

PATIENT
  Age: 28721 Day
  Sex: Female
  Weight: 72.7 kg

DRUGS (4)
  1. SEROQUEL [Suspect]
     Indication: DEPRESSION
     Route: 048
     Dates: start: 19970101
  2. HALDOL [Concomitant]
  3. RISPERDAL [Concomitant]
     Route: 048
  4. ZYPREXA [Concomitant]
     Route: 048

REACTIONS (3)
  - HYPERTENSION [None]
  - MYOCARDIAL INFARCTION [None]
  - PANCREATITIS [None]
